FAERS Safety Report 9263074 (Version 1)
Quarter: 2013Q2

REPORT INFORMATION
  Report Type: Spontaneous
  Country: GB (occurrence: None)
  Receive Date: 20130425
  Receipt Date: 20130425
  Transmission Date: 20140414
  Serious: Yes (Hospitalization)
  Sender: FDA-Public Use
  Company Number: GB-DEXPHARM-20130165

PATIENT
  Age: 56 Year
  Sex: Female

DRUGS (2)
  1. OMEPRAZOLE [Suspect]
     Indication: GASTROENTERITIS
     Dosage: DOSE: 40 MG MILLIGRAM(S)?SEP. DOSAGES / INTERVAL: 1 IN 1 DAYS?CUMULATIVE DOSE: 638.333333 MG MILLIGRAM(S)
     Route: 048
     Dates: start: 20130317, end: 20130402
  2. DOMPERIDONE [Concomitant]

REACTIONS (4)
  - Decreased appetite [None]
  - Electrolyte imbalance [None]
  - Lethargy [None]
  - Asthenia [None]
